FAERS Safety Report 5574424-3 (Version None)
Quarter: 2007Q4

REPORT INFORMATION
  Report Type: 
  Country: None (occurrence: None)
  Receive Date: 20071226
  Receipt Date: 20071226
  Transmission Date: 20080405
  Serious: Yes (Life-Threatening, Hospitalization)
  Sender: FDA-Public Use
  Company Number: None

PATIENT
  Age: 58 Year
  Sex: Male
  Weight: 266 kg

DRUGS (1)
  1. PREGABALIN [Suspect]
     Indication: NEURALGIA
     Dosage: 150MG TID PO
     Route: 048
     Dates: start: 20051122, end: 20080101

REACTIONS (1)
  - PULMONARY FIBROSIS [None]
